FAERS Safety Report 25903104 (Version 1)
Quarter: 2025Q4

REPORT INFORMATION
  Report Type: Spontaneous
  Country: US (occurrence: US)
  Receive Date: 20251009
  Receipt Date: 20251009
  Transmission Date: 20260119
  Serious: No
  Sender: PFIZER
  Company Number: US-PFIZER INC-202500197857

PATIENT
  Age: 72 Year
  Sex: Female

DRUGS (4)
  1. PAXLOVID [Suspect]
     Active Substance: NIRMATRELVIR\RITONAVIR
     Indication: COVID-19 treatment
     Dosage: UNK
     Dates: start: 202509
  2. ORENCIA [Concomitant]
     Active Substance: ABATACEPT
     Dosage: UNK
  3. REMERON [Concomitant]
     Active Substance: MIRTAZAPINE
     Indication: Type 1 diabetes mellitus
  4. TRADJENTA [Concomitant]
     Active Substance: LINAGLIPTIN
     Indication: Type 1 diabetes mellitus

REACTIONS (3)
  - Influenza like illness [Not Recovered/Not Resolved]
  - Pain [Not Recovered/Not Resolved]
  - Malaise [Not Recovered/Not Resolved]
